FAERS Safety Report 5283104-3 (Version None)
Quarter: 2007Q2

REPORT INFORMATION
  Report Type: 
  Country: None (occurrence: None)
  Receive Date: 20070402
  Receipt Date: 20070321
  Transmission Date: 20071010
  Serious: Yes (Hospitalization)
  Sender: FDA-Public Use
  Company Number: AU-ELI_LILLY_AND_COMPANY-AU200702004144

PATIENT
  Age: 77 Year
  Sex: Female
  Weight: 58 kg

DRUGS (12)
  1. EVISTA [Suspect]
     Indication: OSTEOPOROSIS
     Dosage: 60 MG, DAILY (1/D)
     Route: 048
  2. SIMVASTATIN [Concomitant]
     Dosage: 20 MG, EACH EVENING
     Route: 048
  3. ATACAND [Concomitant]
     Dosage: 16 MG, DAILY (1/D)
     Route: 048
  4. ATROVENT [Concomitant]
     Dosage: 2 UNK, 2/D
     Route: 055
  5. VITAMIN D3 [Concomitant]
     Dosage: 25 UG, DAILY (1/D)
     Route: 048
  6. FRUSEMIDE [Concomitant]
     Dosage: 40 MG, 2/D
     Route: 048
  7. WARFARIN SODIUM [Concomitant]
  8. ACETAMINOPHEN [Concomitant]
     Dosage: 1 G, 3/D
     Route: 048
  9. SOTALOL HYDROCHLORIDE [Concomitant]
     Dosage: UNK MG, 2/D
     Route: 048
  10. SLOW-K [Concomitant]
     Dosage: 1 UNK, 2/D
     Route: 048
  11. ESOMEPRAZOLE MAGNESIUM [Concomitant]
     Dosage: 40 MG, UNK
  12. PULMICORT [Concomitant]
     Dosage: 400 UG, 2/D
     Route: 055

REACTIONS (2)
  - FALL [None]
  - FEMORAL NECK FRACTURE [None]
